FAERS Safety Report 17069596 (Version 3)
Quarter: 2019Q4

REPORT INFORMATION
  Report Type: Report from Study
  Country: US (occurrence: US)
  Receive Date: 20191125
  Receipt Date: 20191213
  Transmission Date: 20200122
  Serious: Yes (Other)
  Sender: FDA-Public Use
  Company Number: US-ADVANZ PHARMA-201911001903

PATIENT

DRUGS (14)
  1. FOLIC ACID. [Concomitant]
     Active Substance: FOLIC ACID
     Indication: PRODUCT USED FOR UNKNOWN INDICATION
     Dosage: UNK
  2. HUMIRA [Suspect]
     Active Substance: ADALIMUMAB
     Dosage: 40 MG; 1 IN 2 WK
     Route: 058
     Dates: start: 201910
  3. PLAQUENIL [Concomitant]
     Active Substance: HYDROXYCHLOROQUINE SULFATE
     Indication: PRODUCT USED FOR UNKNOWN INDICATION
     Dosage: UNK
  4. VITAMIN D [Concomitant]
     Active Substance: VITAMIN D NOS
     Indication: PRODUCT USED FOR UNKNOWN INDICATION
     Dosage: UNK
  5. HYDROXYCHLOROQUINE [Suspect]
     Active Substance: HYDROXYCHLOROQUINE
     Dosage: UNK UNK, QD
     Route: 065
  6. HUMIRA [Suspect]
     Active Substance: ADALIMUMAB
     Dosage: UNK
     Route: 058
  7. VITAMIN B [Concomitant]
     Active Substance: VITAMIN B
     Indication: PRODUCT USED FOR UNKNOWN INDICATION
     Dosage: UNK
  8. FISH OIL [Concomitant]
     Active Substance: FISH OIL
     Indication: PRODUCT USED FOR UNKNOWN INDICATION
     Dosage: UNK
  9. HYDROXYCHLOROQUINE [Suspect]
     Active Substance: HYDROXYCHLOROQUINE
     Indication: PRODUCT USED FOR UNKNOWN INDICATION
     Dosage: UNK UNK, BID
     Route: 065
  10. HUMIRA [Suspect]
     Active Substance: ADALIMUMAB
     Indication: RHEUMATOID ARTHRITIS
     Dosage: 40 MG; 1 IN 2 WK, 40MG/0.4ML
     Route: 058
     Dates: start: 2013, end: 20180531
  11. MOBIC [Concomitant]
     Active Substance: MELOXICAM
     Indication: PRODUCT USED FOR UNKNOWN INDICATION
     Dosage: UNK
  12. BIOTIN [Concomitant]
     Active Substance: BIOTIN
     Indication: PRODUCT USED FOR UNKNOWN INDICATION
     Dosage: UNK
  13. HUMIRA [Suspect]
     Active Substance: ADALIMUMAB
     Dosage: 40 MG; 1 IN 2 WK
     Route: 058
     Dates: start: 20180913, end: 2019
  14. AMITRIPTYLINE [Concomitant]
     Active Substance: AMITRIPTYLINE
     Indication: PRODUCT USED FOR UNKNOWN INDICATION
     Dosage: UNK

REACTIONS (29)
  - Postoperative thrombosis [Unknown]
  - Skin fissures [Unknown]
  - Nodule [Unknown]
  - Venous operation [Unknown]
  - Skin discolouration [Recovered/Resolved]
  - Pruritus [Recovered/Resolved]
  - Musculoskeletal disorder [Unknown]
  - Nail disorder [Unknown]
  - Pain [Unknown]
  - Skin haemorrhage [Unknown]
  - Upper limb fracture [Recovered/Resolved]
  - Ingrowing nail [Not Recovered/Not Resolved]
  - Post procedural complication [Unknown]
  - Skin discolouration [Unknown]
  - Poor peripheral circulation [Unknown]
  - Rheumatoid arthritis [Recovering/Resolving]
  - Onychomadesis [Not Recovered/Not Resolved]
  - Cyst rupture [Unknown]
  - Malignant melanoma [Unknown]
  - Musculoskeletal stiffness [Recovered/Resolved]
  - Nail bed bleeding [Unknown]
  - Visual impairment [Recovered/Resolved]
  - Varicose vein [Recovered/Resolved]
  - Fall [Unknown]
  - Deep vein thrombosis [Unknown]
  - Malignant melanoma in situ [Recovered/Resolved]
  - Carpal tunnel syndrome [Unknown]
  - Pain [Recovered/Resolved]
  - Back pain [Unknown]

NARRATIVE: CASE EVENT DATE: 2015
